FAERS Safety Report 22206806 (Version 1)
Quarter: 2023Q2

REPORT INFORMATION
  Report Type: Spontaneous
  Country: US (occurrence: US)
  Receive Date: 20230413
  Receipt Date: 20230413
  Transmission Date: 20230722
  Serious: Yes (Hospitalization)
  Sender: FDA-Public Use
  Company Number: US-BAYER-2023A045873

PATIENT
  Age: 22 Year
  Sex: Female

DRUGS (1)
  1. LEVONORGESTREL [Suspect]
     Active Substance: LEVONORGESTREL

REACTIONS (6)
  - Pelvic inflammatory disease [None]
  - Chlamydial infection [None]
  - Perihepatitis [None]
  - Small intestinal obstruction [None]
  - Haemorrhagic ascites [None]
  - Abdominal adhesions [None]
